FAERS Safety Report 6417277-3 (Version None)
Quarter: 2009Q4

REPORT INFORMATION
  Report Type: 
  Country: None (occurrence: None)
  Receive Date: 20091028
  Receipt Date: 20091014
  Transmission Date: 20100525
  Serious: Yes (Hospitalization)
  Sender: FDA-Public Use
  Company Number: PHHO2009FR12653

PATIENT
  Sex: Female

DRUGS (1)
  1. RAD 666 RAD+TAB [Suspect]
     Indication: ENDOMETRIAL CANCER METASTATIC
     Dosage: 10 MG/DAY
     Route: 048
     Dates: start: 20090722, end: 20091009

REACTIONS (4)
  - ANAEMIA [None]
  - ASCITES [None]
  - CONCOMITANT DISEASE PROGRESSION [None]
  - GENERAL PHYSICAL HEALTH DETERIORATION [None]
